FAERS Safety Report 8994459 (Version 1)
Quarter: 2013Q1

REPORT INFORMATION
  Report Type: Spontaneous
  Country: US (occurrence: US)
  Receive Date: 20130102
  Receipt Date: 20130102
  Transmission Date: 20140127
  Serious: No
  Sender: FDA-Public Use
  Company Number: US-AMGEN-USASP2012080556

PATIENT
  Age: 64 None
  Sex: Female

DRUGS (5)
  1. ENBREL [Suspect]
     Indication: RHEUMATOID ARTHRITIS
     Dosage: 50 MG, QWK
     Dates: start: 20080101
  2. PLAQUENIL                          /00072602/ [Concomitant]
     Dosage: 200MG/1 TAB/TWICE DAILY
     Dates: start: 2008
  3. PREDNISONE [Concomitant]
     Dosage: 2.5MG/1 TAB/DAILY
     Dates: start: 2011
  4. ARAVA [Concomitant]
     Dosage: 20MG/1 TAB/DAILY
     Dates: start: 2008
  5. MINOCYCLINE [Concomitant]
     Dosage: 50MG/1 TAB/DAILY

REACTIONS (10)
  - Nervousness [Not Recovered/Not Resolved]
  - Rhinorrhoea [Not Recovered/Not Resolved]
  - Oropharyngeal pain [Not Recovered/Not Resolved]
  - Asthma [Recovered/Resolved]
  - Abdominal pain [Not Recovered/Not Resolved]
  - Vomiting [Not Recovered/Not Resolved]
  - Dysphagia [Not Recovered/Not Resolved]
  - Diarrhoea [Not Recovered/Not Resolved]
  - Local swelling [Recovered/Resolved]
  - Bronchitis [Recovered/Resolved]
